FAERS Safety Report 8413551-X (Version None)
Quarter: 2012Q2

REPORT INFORMATION
  Report Type: 
  Country: None (occurrence: None)
  Receive Date: 20120605
  Receipt Date: 20120530
  Transmission Date: 20120825
  Serious: Yes (Other)
  Sender: FDA-Public Use
  Company Number: FR-GLAXOSMITHKLINE-B0773742A

PATIENT
  Sex: Female

DRUGS (11)
  1. METFORMIN HCL [Concomitant]
     Route: 065
  2. DIAMICRON [Concomitant]
     Route: 065
  3. REQUIP [Suspect]
     Indication: PARKINSON'S DISEASE
     Dosage: 16MG IN THE MORNING
     Route: 048
     Dates: start: 20090101
  4. MODOPAR [Concomitant]
     Route: 065
  5. TRIVASTAL [Concomitant]
     Route: 065
  6. AZILECT [Concomitant]
     Dosage: 1TAB PER DAY
     Route: 048
  7. REQUIP [Suspect]
     Indication: PARKINSON'S DISEASE
     Dosage: 2MG IN THE MORNING
     Route: 048
  8. AMITRIPTYLINE HCL [Concomitant]
     Route: 065
  9. ACETAMINOPHEN AND TRAMADOL HCL [Concomitant]
     Route: 065
  10. LEXOMIL [Concomitant]
     Route: 065
  11. ATARAX [Concomitant]
     Dosage: 25MG PER DAY
     Route: 065

REACTIONS (9)
  - INTENTIONAL OVERDOSE [None]
  - SUICIDE ATTEMPT [None]
  - INSOMNIA [None]
  - SOMNOLENCE [None]
  - HEADACHE [None]
  - THEFT [None]
  - DIZZINESS [None]
  - PATHOLOGICAL GAMBLING [None]
  - ABNORMAL BEHAVIOUR [None]
